FAERS Safety Report 4906606-5 (Version None)
Quarter: 2006Q1

REPORT INFORMATION
  Report Type: 
  Country: None (occurrence: None)
  Receive Date: 20060209
  Receipt Date: 20060207
  Transmission Date: 20060701
  Serious: Yes (Other)
  Sender: FDA-Public Use
  Company Number: US-GLAXOSMITHKLINE-A0592836A

PATIENT
  Age: 28 Year
  Sex: Female

DRUGS (2)
  1. PAXIL [Suspect]
     Indication: ANXIETY
     Route: 048
  2. SUDAFED 12 HOUR [Suspect]
     Route: 065
     Dates: start: 20051201, end: 20051201

REACTIONS (5)
  - BLOOD PRESSURE DECREASED [None]
  - DIZZINESS [None]
  - DYSPNOEA [None]
  - RESPIRATORY DEPRESSION [None]
  - SINUSITIS [None]
